FAERS Safety Report 6865514-3 (Version None)
Quarter: 2010Q3

REPORT INFORMATION
  Report Type: 
  Country: None (occurrence: None)
  Receive Date: 20100721
  Receipt Date: 20100716
  Transmission Date: 20110219
  Serious: Yes (Other)
  Sender: FDA-Public Use
  Company Number: US-AMGEN-QUU408616

PATIENT
  Sex: Male
  Weight: 110.6 kg

DRUGS (7)
  1. NPLATE [Suspect]
     Indication: IDIOPATHIC THROMBOCYTOPENIC PURPURA
     Route: 058
     Dates: start: 20090924, end: 20090930
  2. CORTICOSTEROIDS [Concomitant]
  3. PREDNISONE [Concomitant]
     Dates: start: 20060315, end: 20070130
  4. LASIX [Concomitant]
  5. MULTI-VITAMINS [Concomitant]
  6. TYLENOL [Concomitant]
  7. VICODIN [Concomitant]

REACTIONS (2)
  - THERAPEUTIC RESPONSE INCREASED [None]
  - THROMBOPHLEBITIS SUPERFICIAL [None]
